FAERS Safety Report 5037681-8 (Version None)
Quarter: 2006Q2

REPORT INFORMATION
  Report Type: 
  Country: None (occurrence: None)
  Receive Date: 20060623
  Receipt Date: 20060609
  Transmission Date: 20061013
  Serious: Yes (Death)
  Sender: FDA-Public Use
  Company Number: SPVI-2006-00044

PATIENT
  Sex: 0

DRUGS (1)
  1. ANAGRELIDE HCL [Suspect]

REACTIONS (2)
  - INTESTINAL OBSTRUCTION [None]
  - PULMONARY EMBOLISM [None]
